FAERS Safety Report 11943182 (Version 1)
Quarter: 2016Q1

REPORT INFORMATION
  Report Type: Spontaneous
  Country: US (occurrence: US)
  Receive Date: 20160125
  Receipt Date: 20160125
  Transmission Date: 20160526
  Serious: No
  Sender: FDA-Public Use
  Company Number: US-UNITED THERAPEUTICS-UNT-2015-008833

PATIENT
  Sex: Female
  Weight: 72.56 kg

DRUGS (8)
  1. ORENITRAM [Suspect]
     Active Substance: TREPROSTINIL
     Dosage: UNK
     Route: 048
  2. ORENITRAM [Suspect]
     Active Substance: TREPROSTINIL
     Dosage: UNK
     Route: 048
  3. ORENITRAM [Suspect]
     Active Substance: TREPROSTINIL
     Dosage: 12 MG, TID
     Route: 048
     Dates: start: 20150529
  4. ORENITRAM [Suspect]
     Active Substance: TREPROSTINIL
     Dosage: 12 MG, TID
     Route: 048
  5. ORENITRAM [Suspect]
     Active Substance: TREPROSTINIL
     Dosage: UNK
     Route: 048
  6. ORENITRAM [Suspect]
     Active Substance: TREPROSTINIL
     Indication: PULMONARY HYPERTENSION
     Dosage: 9.25 MG, TID
     Route: 048
     Dates: start: 20150529
  7. ORENITRAM [Suspect]
     Active Substance: TREPROSTINIL
     Dosage: 9.5 MG, TID
     Route: 048
     Dates: start: 20150529
  8. COUMADIN [Concomitant]
     Active Substance: WARFARIN SODIUM
     Indication: PRODUCT USED FOR UNKNOWN INDICATION

REACTIONS (14)
  - White blood cell count increased [Unknown]
  - Constipation [Unknown]
  - Trismus [Unknown]
  - Headache [Unknown]
  - Fatigue [Unknown]
  - Chest discomfort [Unknown]
  - Muscle spasms [Unknown]
  - Back pain [Unknown]
  - Vomiting [Unknown]
  - Nausea [Unknown]
  - Face oedema [Unknown]
  - Malaise [Unknown]
  - Vaginal discharge [Unknown]
  - Blood pressure increased [Unknown]

NARRATIVE: CASE EVENT DATE: 2015
